FAERS Safety Report 5327830-6 (Version None)
Quarter: 2007Q2

REPORT INFORMATION
  Report Type: 
  Country: None (occurrence: None)
  Receive Date: 20070517
  Receipt Date: 20070505
  Transmission Date: 20071010
  Serious: Yes (Other)
  Sender: FDA-Public Use
  Company Number: US-JNJFOC-20070501513

PATIENT
  Sex: Male
  Weight: 63.05 kg

DRUGS (6)
  1. TMC125 [Suspect]
     Indication: HIV INFECTION
     Route: 048
  2. PREZISTA [Suspect]
     Indication: HIV INFECTION
     Route: 048
  3. RITONAVIR [Concomitant]
     Indication: HIV INFECTION
     Route: 048
  4. FUZEON [Concomitant]
     Indication: HIV INFECTION
     Route: 058
  5. TRUVADA [Concomitant]
     Indication: HIV INFECTION
     Route: 048
  6. MK0518 [Concomitant]
     Indication: HIV INFECTION
     Route: 048

REACTIONS (1)
  - PLASMACYTOMA [None]
